FAERS Safety Report 4910135-2 (Version None)
Quarter: 2006Q1

REPORT INFORMATION
  Report Type: 
  Country: None (occurrence: None)
  Receive Date: 20060209
  Receipt Date: 20060127
  Transmission Date: 20060701
  Serious: Yes (Death, Hospitalization)
  Sender: FDA-Public Use
  Company Number: L05-USA-03935-31

PATIENT
  Age: 57 Year
  Sex: Male

DRUGS (5)
  1. DILTIAZEM [Suspect]
  2. CLONIDINE [Suspect]
  3. VENLAFAXINE HCL [Suspect]
  4. RISPERIDONE [Suspect]
  5. HYDROCHLOROTHIAZIDE [Suspect]

REACTIONS (6)
  - CHEST X-RAY NORMAL [None]
  - COMPLETED SUICIDE [None]
  - DEPRESSED LEVEL OF CONSCIOUSNESS [None]
  - HYPOTENSION [None]
  - NERVOUS SYSTEM DISORDER [None]
  - REFUSAL OF TREATMENT BY RELATIVE [None]
